FAERS Safety Report 9709473 (Version 1)
Quarter: 2013Q4

REPORT INFORMATION
  Report Type: Spontaneous
  Country: US (occurrence: US)
  Receive Date: 20131126
  Receipt Date: 20131126
  Transmission Date: 20140711
  Serious: Yes (Hospitalization)
  Sender: FDA-Public Use
  Company Number: US-AMGEN-USASP2013083095

PATIENT
  Age: 11 Year
  Sex: Male

DRUGS (11)
  1. NEUPOGEN [Suspect]
     Indication: PRODUCT USED FOR UNKNOWN INDICATION
     Dosage: UNK
     Route: 065
  2. ALBUTEROL                          /00139501/ [Concomitant]
     Dosage: UNK
  3. BUSPAR [Concomitant]
     Dosage: UNK
  4. CHLORHEXIDINE GLUCONATE [Concomitant]
     Dosage: UNK
  5. LIDOCAINE/PRILOCAINE [Concomitant]
     Dosage: UNK
  6. LORATADINE [Concomitant]
     Dosage: UNK
  7. MARINOL                            /00003301/ [Concomitant]
     Dosage: UNK
  8. MIRALAX                            /00754501/ [Concomitant]
     Dosage: UNK
  9. MULTIVITAMINS, PLAIN [Concomitant]
     Dosage: UNK
  10. PEPCID                             /00305201/ [Concomitant]
     Dosage: UNK
  11. BACTRIM [Concomitant]
     Dosage: UNK

REACTIONS (1)
  - Hospitalisation [Recovered/Resolved]
